FAERS Safety Report 9294959 (Version 1)
Quarter: 2013Q2

REPORT INFORMATION
  Report Type: Other
  Country: IT (occurrence: IT)
  Receive Date: 20130517
  Receipt Date: 20130517
  Transmission Date: 20140414
  Serious: Yes (Hospitalization)
  Sender: FDA-Public Use
  Company Number: IT-BRISTOL-MYERS SQUIBB COMPANY-18873166

PATIENT
  Age: 81 Year
  Sex: Male

DRUGS (5)
  1. MEGESTROL ACETATE [Suspect]
     Dosage: FOR 1 YEAR
  2. OXYCODONE [Concomitant]
  3. RAMIPRIL [Concomitant]
  4. FUROSEMIDE [Concomitant]
  5. SPIRONOLACTONE [Concomitant]

REACTIONS (1)
  - Adrenal insufficiency [Unknown]
